FAERS Safety Report 23388498 (Version 1)
Quarter: 2024Q1

REPORT INFORMATION
  Report Type: Spontaneous
  Country: CA (occurrence: CA)
  Receive Date: 20240110
  Receipt Date: 20240110
  Transmission Date: 20240410
  Serious: Yes (Life-Threatening, Other)
  Sender: FDA-Public Use
  Company Number: CA-AMGEN-CANSP2024002007

PATIENT

DRUGS (2)
  1. BEVACIZUMAB [Suspect]
     Active Substance: BEVACIZUMAB
     Indication: Ovarian cancer
     Dosage: UNK (TREATMENT IS USUALLY GIVEN EVERY 3 WEEKS)
     Route: 065
  2. CARBOPLATIN\PACLITAXEL [Concomitant]
     Active Substance: CARBOPLATIN\PACLITAXEL
     Dosage: UNK (TREATMENT IS USUALLY GIVEN EVERY 3 WEEKS)
     Route: 065

REACTIONS (16)
  - Cerebrovascular accident [Unknown]
  - Haemorrhage [Unknown]
  - Myocardial infarction [Unknown]
  - Intestinal perforation [Unknown]
  - Venous thrombosis [Unknown]
  - Toxicity to various agents [Unknown]
  - Alopecia [Unknown]
  - Hypoaesthesia [Unknown]
  - Pyrexia [Unknown]
  - Myalgia [Unknown]
  - Arthralgia [Unknown]
  - Nausea [Unknown]
  - Fatigue [Unknown]
  - Diarrhoea [Unknown]
  - Constipation [Unknown]
  - Blood pressure increased [Unknown]
